FAERS Safety Report 9109481 (Version 1)
Quarter: 2013Q1

REPORT INFORMATION
  Report Type: Spontaneous
  Country: ES (occurrence: ES)
  Receive Date: 20130222
  Receipt Date: 20130222
  Transmission Date: 20140127
  Serious: Yes (Hospitalization)
  Sender: FDA-Public Use
  Company Number: PHHY2013ES013961

PATIENT
  Sex: Male

DRUGS (5)
  1. CO-VALS [Suspect]
     Indication: HYPERTENSION
     Dosage: UNK
     Route: 048
     Dates: start: 20120228, end: 20120409
  2. ENALAPRIL [Interacting]
     Indication: HYPERTENSION
     Dosage: UNK
     Route: 048
     Dates: start: 20120213, end: 20120409
  3. ALLOPURINOL [Concomitant]
     Dosage: UNK
     Dates: start: 2007, end: 20120409
  4. TROMALYT [Concomitant]
     Dosage: UNK UKN, UNK
     Dates: start: 2006, end: 20120409
  5. PRAVASTATIN [Concomitant]
     Dosage: UNK UKN, UNK
     Dates: start: 2006, end: 20120409

REACTIONS (5)
  - Atrioventricular block [Recovered/Resolved]
  - Renal failure acute [Recovered/Resolved]
  - Hyperkalaemia [Recovered/Resolved]
  - Blood creatine increased [Recovered/Resolved]
  - Drug interaction [Recovered/Resolved]
